FAERS Safety Report 9986456 (Version 1)
Quarter: 2014Q1

REPORT INFORMATION
  Report Type: Spontaneous
  Country: US (occurrence: US)
  Receive Date: 20140307
  Receipt Date: 20140307
  Transmission Date: 20141002
  Serious: No
  Sender: FDA-Public Use
  Company Number: US-009507513-1403USA002619

PATIENT
  Age: 75 Year
  Sex: Female

DRUGS (2)
  1. NASONEX [Suspect]
     Indication: SINUS DISORDER
     Dosage: 2 SPRAYS IN EACH NOSRIL ONCE A DAY
     Route: 045
     Dates: start: 201306
  2. NASONEX [Suspect]
     Indication: NASAL POLYPS

REACTIONS (3)
  - Nasal discomfort [Not Recovered/Not Resolved]
  - Product quality issue [Not Recovered/Not Resolved]
  - Drug dose omission [Not Recovered/Not Resolved]
